FAERS Safety Report 6896338-9 (Version None)
Quarter: 2010Q3

REPORT INFORMATION
  Report Type: 
  Country: None (occurrence: None)
  Receive Date: 20100802
  Receipt Date: 20100707
  Transmission Date: 20110219
  Serious: Yes (Other)
  Sender: FDA-Public Use
  Company Number: CO-PFIZER INC-2010076956

PATIENT
  Age: 31 Year
  Sex: Female

DRUGS (4)
  1. LIPITOR [Suspect]
     Indication: BLOOD CHOLESTEROL INCREASED
     Dosage: 40 MG, SPLIT IN 2, TAKES 1/2 TABLET
     Route: 048
     Dates: start: 20100602, end: 20100623
  2. SALBUTAMOL [Concomitant]
     Indication: ASTHMA
     Dosage: UNK
  3. SYNTHROID [Concomitant]
     Indication: HYPOTHYROIDISM
     Dosage: 50 MCG ONE DAY, 25 MCG THE NEXT
  4. SYNTHROID [Concomitant]
     Dosage: 25 MCG ALTERNATE DAYS

REACTIONS (1)
  - NEPHROLITHIASIS [None]
